FAERS Safety Report 11899004 (Version 3)
Quarter: 2016Q1

REPORT INFORMATION
  Report Type: Spontaneous
  Country: US (occurrence: US)
  Receive Date: 20160108
  Receipt Date: 20160315
  Transmission Date: 20160526
  Serious: Yes (Other)
  Sender: FDA-Public Use
  Company Number: US-PFIZER INC-2015356285

PATIENT
  Age: 68 Year
  Sex: Female
  Weight: 60 kg

DRUGS (6)
  1. PROCHLORPERAZINE. [Concomitant]
     Active Substance: PROCHLORPERAZINE
     Dosage: 10 MG, AS NEEDED (1 TABLET 3 TIMES DAILY)
     Route: 048
     Dates: start: 201406
  2. ALEVE [Concomitant]
     Active Substance: NAPROXEN SODIUM
     Indication: ANTICOAGULANT THERAPY
     Dosage: UNK, AS NEEDED
     Dates: end: 20160224
  3. AMBIEN [Concomitant]
     Active Substance: ZOLPIDEM TARTRATE
     Dosage: 5 MG, AS NEEDED (1 TABLET AT BEDTIME)
     Route: 048
     Dates: start: 201405
  4. NEXIUM [Concomitant]
     Active Substance: ESOMEPRAZOLE MAGNESIUM
     Dosage: 40 MG, UNK
     Route: 048
  5. SUTENT [Suspect]
     Active Substance: SUNITINIB MALATE
     Indication: SMALL INTESTINE CARCINOMA
     Dosage: 37.5 MG, CYCLIC (ONE CAPSULE DAILY DAYS 1-14 THEN 1 WEEK OFF)
     Route: 048
     Dates: start: 20151110
  6. SUTENT [Suspect]
     Active Substance: SUNITINIB MALATE
     Dosage: 50 MG, CYCLIC (2 WEEKS ON AND 1 WEEK OFF)
     Route: 048
     Dates: start: 201511

REACTIONS (8)
  - Rectal haemorrhage [Not Recovered/Not Resolved]
  - Dysgeusia [Not Recovered/Not Resolved]
  - Nail disorder [Unknown]
  - Abnormal faeces [Not Recovered/Not Resolved]
  - Onychomycosis [Unknown]
  - Peripheral swelling [Unknown]
  - Condition aggravated [Unknown]
  - Pain in extremity [Unknown]

NARRATIVE: CASE EVENT DATE: 201601
